FAERS Safety Report 8969090 (Version 1)
Quarter: 2012Q4

REPORT INFORMATION
  Report Type: 
  Country: US (occurrence: US)
  Receive Date: 20121217
  Receipt Date: 20121217
  Transmission Date: 20130627
  Serious: Yes (Other)
  Sender: FDA-Public Use
  Company Number: US-PFIZER INC-2012318566

PATIENT
  Age: 51 Year
  Sex: Female

DRUGS (8)
  1. NEURONTIN [Suspect]
     Indication: NERVOUS SYSTEM DISORDER
     Dosage: 400 mg, daily
     Dates: end: 2011
  2. PROZAC [Suspect]
     Dosage: UNK
  3. PERCOCET [Concomitant]
     Indication: PAIN
     Dosage: four tablets of ^10mg^ daily
  4. MOBIC [Concomitant]
     Indication: ANTIINFLAMMATORY THERAPY
     Dosage: 4 mg, daily
  5. ENALAPRIL [Concomitant]
     Indication: CONGESTIVE HEART FAILURE
     Dosage: 5 mg, daily
  6. ENALAPRIL [Concomitant]
     Indication: BLOOD PRESSURE HIGH
  7. CARVEDILOL [Concomitant]
     Indication: CONGESTIVE HEART FAILURE
     Dosage: 6.25 mg, 2x/day
  8. CARVEDILOL [Concomitant]
     Indication: BLOOD PRESSURE HIGH

REACTIONS (7)
  - Intervertebral disc disorder [Unknown]
  - Sciatica [Unknown]
  - Nervous system disorder [Unknown]
  - Pain [Unknown]
  - Pain in extremity [Unknown]
  - Feeling abnormal [Unknown]
  - Headache [Unknown]
